FAERS Safety Report 9664793 (Version 5)
Quarter: 2015Q1

REPORT INFORMATION
  Report Type: Report from Study
  Country: KR (occurrence: KR)
  Receive Date: 20131101
  Receipt Date: 20150211
  Transmission Date: 20150721
  Serious: Yes (Hospitalization)
  Sender: FDA-Public Use
  Company Number: KR-009507513-1310KOR013685

PATIENT
  Age: 50 Year
  Sex: Female

DRUGS (21)
  1. VIRAMID [Suspect]
     Active Substance: RIBAVIRIN
     Dosage: 200 MG, TID
     Route: 048
     Dates: start: 20140704, end: 20140709
  2. NESP [Concomitant]
     Active Substance: DARBEPOETIN ALFA
     Indication: ANAEMIA
     Dosage: UNK, PRN, STRENGTH: 120 MCG/ML/PUFFS
     Route: 042
     Dates: start: 20130719, end: 20140628
  3. VIRAMID [Suspect]
     Active Substance: RIBAVIRIN
     Dosage: 200 MG, BID
     Route: 048
     Dates: start: 20131212, end: 20140528
  4. VIRAMID [Suspect]
     Active Substance: RIBAVIRIN
     Dosage: 200 MG, TID
     Route: 048
     Dates: start: 20140529, end: 20140611
  5. VIRAMID [Suspect]
     Active Substance: RIBAVIRIN
     Dosage: 200 MG, BID
     Route: 048
     Dates: start: 20140626, end: 20140703
  6. VIRAMID [Suspect]
     Active Substance: RIBAVIRIN
     Dosage: 200 MG, TID
     Route: 048
     Dates: start: 20140722, end: 20140731
  7. BOCEPREVIR [Suspect]
     Active Substance: BOCEPREVIR
     Dosage: 4 CAPSULES, TID
     Route: 048
     Dates: start: 20131101, end: 20140508
  8. PEGINTRON [Suspect]
     Active Substance: PEGINTERFERON ALFA-2B
     Dosage: 90 MICROGRAM, QW
     Route: 042
     Dates: start: 20140626, end: 20140807
  9. ANTIROID [Concomitant]
     Indication: THYROID DISORDER
     Dosage: 4 DF, BID
     Route: 048
     Dates: start: 20130720, end: 20140221
  10. RABIET [Concomitant]
     Indication: GASTROOESOPHAGEAL REFLUX DISEASE
     Dosage: 20 MG, QD
     Route: 048
     Dates: start: 20130726, end: 20131025
  11. VIRAMID [Suspect]
     Active Substance: RIBAVIRIN
     Dosage: 400 MG, BID
     Route: 048
     Dates: start: 20130929, end: 20131010
  12. LEGALON [Concomitant]
     Active Substance: MILK THISTLE
     Indication: PROPHYLAXIS
     Dosage: 3 CAPSULES, TID
     Route: 048
     Dates: start: 20130726, end: 20140814
  13. BOCEPREVIR [Suspect]
     Active Substance: BOCEPREVIR
     Indication: CHRONIC HEPATITIS C
     Dosage: 4 CAPSULES, TID
     Route: 048
     Dates: start: 20130927, end: 20131028
  14. PEGINTRON [Suspect]
     Active Substance: PEGINTERFERON ALFA-2B
     Indication: CHRONIC HEPATITIS C
     Dosage: 100 MICROGRAM, QW
     Route: 042
     Dates: start: 20130830, end: 20131018
  15. PEGINTRON [Suspect]
     Active Substance: PEGINTERFERON ALFA-2B
     Dosage: 100 MICROGRAM, QW
     Route: 042
     Dates: start: 20140522, end: 20140619
  16. VIRAMID [Suspect]
     Active Substance: RIBAVIRIN
     Indication: CHRONIC HEPATITIS C
     Dosage: 400 MG, BID
     Route: 048
     Dates: start: 20130830, end: 20130926
  17. VIRAMID [Suspect]
     Active Substance: RIBAVIRIN
     Dosage: 400 MG, BID
     Route: 048
     Dates: start: 20140710, end: 20140721
  18. VIRAMID [Suspect]
     Active Substance: RIBAVIRIN
     Dosage: 200 MG, BID
     Route: 048
     Dates: start: 20140808, end: 20140814
  19. PEGINTRON [Suspect]
     Active Substance: PEGINTERFERON ALFA-2B
     Dosage: 90 MICROGRAM, QW
     Route: 042
     Dates: start: 20131025, end: 20140515
  20. VIRAMID [Suspect]
     Active Substance: RIBAVIRIN
     Dosage: 200 MG, BID
     Route: 048
     Dates: start: 20131011, end: 20131023
  21. VIRAMID [Suspect]
     Active Substance: RIBAVIRIN
     Dosage: 200 MG, QD
     Route: 048
     Dates: start: 20131102, end: 20131211

REACTIONS (7)
  - Hypersensitivity [Recovered/Resolved]
  - Dermatitis [Recovered/Resolved]
  - Anaemia [Recovered/Resolved]
  - Hypophagia [Recovered/Resolved]
  - Neutropenia [Recovered/Resolved]
  - Decreased appetite [Recovered/Resolved]
  - Nausea [Recovered/Resolved]

NARRATIVE: CASE EVENT DATE: 20131004
